FAERS Safety Report 5875310-1 (Version None)
Quarter: 2008Q3

REPORT INFORMATION
  Report Type: 
  Country: None (occurrence: None)
  Receive Date: 20080909
  Receipt Date: 20080904
  Transmission Date: 20090109
  Serious: Yes (Hospitalization)
  Sender: FDA-Public Use
  Company Number: GB-MERCK-0805GBR00114

PATIENT
  Age: 65 Year
  Sex: Female
  Weight: 108 kg

DRUGS (6)
  1. JANUVIA [Suspect]
     Indication: TYPE 2 DIABETES MELLITUS
     Route: 048
     Dates: start: 20080116, end: 20080313
  2. METFORMIN [Concomitant]
     Indication: TYPE 2 DIABETES MELLITUS
     Route: 048
     Dates: start: 20051116
  3. REPAGLINIDE [Concomitant]
     Indication: TYPE 2 DIABETES MELLITUS
     Route: 048
     Dates: start: 20080402
  4. BENDROFLUMETHIAZIDE [Concomitant]
     Indication: HYPERTENSION
     Route: 065
  5. BISOPROLOL [Concomitant]
     Indication: HYPERTENSION
     Route: 065
  6. ATORVASTATIN [Concomitant]
     Indication: HYPERTENSION
     Route: 065

REACTIONS (1)
  - RENAL FAILURE ACUTE [None]
